FAERS Safety Report 8371093-4 (Version None)
Quarter: 2012Q2

REPORT INFORMATION
  Report Type: 
  Country: None (occurrence: None)
  Receive Date: 20120518
  Receipt Date: 20120125
  Transmission Date: 20120825
  Serious: Yes (Other)
  Sender: FDA-Public Use
  Company Number: US-BRISTOL-MYERS SQUIBB COMPANY-16319626

PATIENT
  Age: 58 Year
  Sex: Male
  Weight: 61 kg

DRUGS (3)
  1. BARACLUDE [Suspect]
     Dates: start: 20060101
  2. METFORMIN HCL [Concomitant]
  3. GLUCOTROL [Concomitant]

REACTIONS (1)
  - DRUG INEFFECTIVE [None]
